FAERS Safety Report 9771883 (Version 3)
Quarter: 2014Q2

REPORT INFORMATION
  Report Type: Report from Study
  Country: JP (occurrence: JP)
  Receive Date: 20131219
  Receipt Date: 20140620
  Transmission Date: 20141212
  Serious: Yes (Other)
  Sender: FDA-Public Use
  Company Number: PHHY2013JP147708

PATIENT
  Age: 48 Year
  Sex: Male
  Weight: 76 kg

DRUGS (15)
  1. FTY 720 [Suspect]
     Indication: MULTIPLE SCLEROSIS
     Dosage: 0.5 MG, QD
     Dates: start: 20120410
  2. PREDNISOLONE [Concomitant]
     Indication: MULTIPLE SCLEROSIS
     Dosage: 10 MG, UNK
     Route: 048
  3. PREDNISOLONE [Concomitant]
     Dosage: 5 MG, UNK
     Route: 048
     Dates: end: 20120506
  4. RIVOTRIL [Concomitant]
     Indication: MULTIPLE SCLEROSIS
     Dosage: 2.5 MG, UNK
     Route: 048
  5. RIVOTRIL [Concomitant]
     Dosage: 3 MG, UNK
     Route: 048
  6. RIVOTRIL [Concomitant]
     Dosage: 4 MG, UNK
     Route: 048
  7. LYRICA [Concomitant]
     Indication: MULTIPLE SCLEROSIS
     Dosage: 450 MG, UNK
     Route: 048
  8. ALEVIATIN [Concomitant]
     Indication: MULTIPLE SCLEROSIS
     Dosage: 300 MG, UNK
     Route: 048
  9. PROTECADIN [Concomitant]
     Dosage: 20 MG, UNK
     Route: 048
  10. CRESTOR [Concomitant]
     Indication: HYPERLIPIDAEMIA
     Dosage: 2.5 MG, UNK
     Route: 048
  11. GASMOTIN [Concomitant]
     Dosage: 15 MG, UNK
     Route: 048
  12. MAGMITT [Concomitant]
     Dosage: 1000 MG, UNK
     Route: 048
  13. CELECOX [Concomitant]
     Dosage: 200 MG, UNK
     Route: 048
  14. DEPAKENE [Concomitant]
     Indication: MULTIPLE SCLEROSIS
     Dosage: 400 MG, UNK
     Dates: start: 20120618
  15. DEPAKENE [Concomitant]
     Dosage: 800 MG, UNK

REACTIONS (3)
  - Hepatic function abnormal [Not Recovered/Not Resolved]
  - Gamma-glutamyltransferase increased [Unknown]
  - Condition aggravated [Recovered/Resolved]
